FAERS Safety Report 5342337-8 (Version None)
Quarter: 2007Q2

REPORT INFORMATION
  Report Type: 
  Country: None (occurrence: None)
  Receive Date: 20070416
  Receipt Date: 20070109
  Transmission Date: 20071010
  Serious: No
  Sender: FDA-Public Use
  Company Number: 2007SP000093

PATIENT
  Age: 59 Year
  Sex: Female
  Weight: 122.4712 kg

DRUGS (13)
  1. LUNESTA [Suspect]
     Indication: INSOMNIA
     Dosage: SEE IMAGE
     Route: 048
     Dates: start: 20070106, end: 20070106
  2. LUNESTA [Suspect]
     Indication: INSOMNIA
     Dosage: SEE IMAGE
     Route: 048
     Dates: start: 20060101
  3. SEROQUEL [Concomitant]
  4. LAMOTRIGINE [Concomitant]
  5. CLONAZEPAM [Concomitant]
  6. GLUCOPHAGE [Concomitant]
  7. ATORVASTATIN CALCIUM [Concomitant]
  8. AMLODIPINE BESYLATE [Concomitant]
  9. HERBAL PREPARATION [Concomitant]
  10. CALCIUM CHLORIDE [Concomitant]
  11. VITAMIN CAP [Concomitant]
  12. OCUVITE [Concomitant]
  13. ACETYLSALICYLIC ACID SRT [Concomitant]

REACTIONS (3)
  - DELUSION [None]
  - INSOMNIA [None]
  - MANIA [None]
